FAERS Safety Report 6216266-1 (Version None)
Quarter: 2009Q2

REPORT INFORMATION
  Report Type: 
  Country: None (occurrence: None)
  Receive Date: 20090605
  Receipt Date: 20090526
  Transmission Date: 20091009
  Serious: Yes (Hospitalization)
  Sender: FDA-Public Use
  Company Number: B0575600A

PATIENT
  Age: 44 Year
  Sex: Female

DRUGS (1)
  1. PAROXETINE HCL [Suspect]
     Indication: DEPRESSION
     Route: 048
     Dates: start: 20080901

REACTIONS (5)
  - CUTANEOUS SARCOIDOSIS [None]
  - INFARCTION [None]
  - INFLAMMATORY PAIN [None]
  - LOCAL SWELLING [None]
  - VASCULITIS [None]
